FAERS Safety Report 11053753 (Version 3)
Quarter: 2018Q2

REPORT INFORMATION
  Report Type: Spontaneous
  Country: US (occurrence: US)
  Receive Date: 20150421
  Receipt Date: 20180602
  Transmission Date: 20180711
  Serious: No
  Sender: FDA-Public Use
  Company Number: US-JNJFOC-20150322348

PATIENT
  Age: 23 Year
  Sex: Male

DRUGS (6)
  1. CONCERTA [Suspect]
     Active Substance: METHYLPHENIDATE HYDROCHLORIDE
     Indication: BIPOLAR DISORDER
     Route: 048
     Dates: start: 20090814
  2. CONCERTA [Suspect]
     Active Substance: METHYLPHENIDATE HYDROCHLORIDE
     Indication: ANXIETY
     Route: 048
     Dates: start: 20090814
  3. RISPERDAL [Suspect]
     Active Substance: RISPERIDONE
     Indication: BIPOLAR DISORDER
     Dosage: 0.25MG, 0.50MG AND 2MG
     Route: 048
     Dates: start: 20061020, end: 20080601
  4. CONCERTA [Suspect]
     Active Substance: METHYLPHENIDATE HYDROCHLORIDE
     Indication: DEPRESSION
     Route: 048
     Dates: start: 20090814
  5. RISPERDAL [Suspect]
     Active Substance: RISPERIDONE
     Indication: DEPRESSION
     Dosage: 0.25MG, 0.50MG AND 2MG
     Route: 048
     Dates: start: 20061020, end: 20080601
  6. RISPERDAL [Suspect]
     Active Substance: RISPERIDONE
     Indication: ANXIETY
     Dosage: 0.25MG, 0.50MG AND 2MG
     Route: 048
     Dates: start: 20061020, end: 20080601

REACTIONS (2)
  - Gynaecomastia [Unknown]
  - Abnormal weight gain [Unknown]

NARRATIVE: CASE EVENT DATE: 20170304
